FAERS Safety Report 6651666-7 (Version None)
Quarter: 2010Q1

REPORT INFORMATION
  Report Type: 
  Country: None (occurrence: None)
  Receive Date: 20100325
  Receipt Date: 20100317
  Transmission Date: 20100710
  Serious: Yes (Other)
  Sender: FDA-Public Use
  Company Number: CI-GILEAD-2010-0027927

PATIENT
  Sex: Female

DRUGS (7)
  1. VIREAD [Suspect]
     Indication: HIV INFECTION
     Route: 048
     Dates: start: 20080703
  2. EMTRIVA [Suspect]
     Indication: HIV INFECTION
     Route: 048
     Dates: start: 20080703
  3. ZIDOVUDINE [Concomitant]
     Indication: HIV INFECTION
     Dates: start: 20080703, end: 20100106
  4. LOPINAVIR [Concomitant]
     Indication: HIV INFECTION
     Dates: start: 20100106
  5. RITONAVIR [Concomitant]
     Indication: HIV INFECTION
     Dates: start: 20100106
  6. SULFAMETHOXAZOLE [Concomitant]
     Indication: OPPORTUNISTIC INFECTION PROPHYLAXIS
     Dates: start: 20080703, end: 20091216
  7. TRIMETHOPRIM [Concomitant]
     Indication: OPPORTUNISTIC INFECTION PROPHYLAXIS
     Dates: start: 20080703, end: 20091216

REACTIONS (1)
  - ABORTION SPONTANEOUS [None]
